FAERS Safety Report 19129780 (Version 4)
Quarter: 2025Q4

REPORT INFORMATION
  Report Type: Spontaneous
  Country: GB (occurrence: GB)
  Receive Date: 20210413
  Receipt Date: 20251216
  Transmission Date: 20260117
  Serious: Yes (Hospitalization)
  Sender: CELLTRION
  Company Number: GB-CELLTRION INC.-2021GB004815

PATIENT

DRUGS (17)
  1. RITUXIMAB [Suspect]
     Active Substance: RITUXIMAB
     Indication: Product used for unknown indication
     Dosage: R-ICE REGIMEN
  2. RITUXIMAB [Suspect]
     Active Substance: RITUXIMAB
     Dosage: R-CHOP REGIMEN
  3. DOXORUBICIN HYDROCHLORIDE [Suspect]
     Active Substance: DOXORUBICIN HYDROCHLORIDE
     Indication: Diffuse large B-cell lymphoma
     Dosage: DOSAGE TEXT:  NUMBER OF SEPARATE DOSES:
  4. CYCLOPHOSPHAMIDE [Suspect]
     Active Substance: CYCLOPHOSPHAMIDE
     Indication: Bone marrow conditioning regimen
     Dosage: DOSAGE TEXT:  NUMBER OF SEPARATE DOSES:
     Route: 065
  5. CYCLOPHOSPHAMIDE [Suspect]
     Active Substance: CYCLOPHOSPHAMIDE
     Indication: Lymphodepletion
  6. CYCLOPHOSPHAMIDE [Suspect]
     Active Substance: CYCLOPHOSPHAMIDE
     Indication: Diffuse large B-cell lymphoma
     Dosage: DOSAGE TEXT:  NUMBER OF SEPARATE DOSES:
     Route: 065
  7. CYCLOPHOSPHAMIDE [Suspect]
     Active Substance: CYCLOPHOSPHAMIDE
     Indication: Lymphodepletion
  8. FLUDARABINE [Suspect]
     Active Substance: FLUDARABINE PHOSPHATE
     Indication: Diffuse large B-cell lymphoma
     Dosage: DOSAGE TEXT:  NUMBER OF SEPARATE DOSES:
     Route: 065
  9. FLUDARABINE [Suspect]
     Active Substance: FLUDARABINE PHOSPHATE
     Indication: Lymphodepletion
  10. FLUDARABINE [Suspect]
     Active Substance: FLUDARABINE PHOSPHATE
     Indication: Bone marrow conditioning regimen
     Dosage: DOSAGE TEXT:  NUMBER OF SEPARATE DOSES:
     Route: 065
  11. FLUDARABINE [Suspect]
     Active Substance: FLUDARABINE PHOSPHATE
     Indication: Lymphodepletion
  12. TOCILIZUMAB [Suspect]
     Active Substance: TOCILIZUMAB
     Indication: Product used for unknown indication
     Dosage: DOSAGE TEXT:  NUMBER OF SEPARATE DOSES:
  13. TOCILIZUMAB [Suspect]
     Active Substance: TOCILIZUMAB
     Dosage: DAY 1
  14. TOCILIZUMAB [Suspect]
     Active Substance: TOCILIZUMAB
     Dosage: DAY 3
  15. TOCILIZUMAB [Suspect]
     Active Substance: TOCILIZUMAB
     Dosage: DAY 5
  16. YESCARTA [Suspect]
     Active Substance: AXICABTAGENE CILOLEUCEL
     Indication: Diffuse large B-cell lymphoma
     Dosage: DOSAGE TEXT:  NUMBER OF SEPARATE DOSES:
  17. GRANULOCYTE COLONY-STIMULATING FACTOR NOS [Concomitant]
     Active Substance: GRANULOCYTE COLONY-STIMULATING FACTOR NOS
     Indication: Product use in unapproved indication
     Dosage: DOSAGE TEXT:  NUMBER OF SEPARATE DOSES:

REACTIONS (12)
  - Confusional state [Recovered/Resolved]
  - Dysgraphia [Recovered/Resolved]
  - Disorientation [Recovered/Resolved]
  - Neurological symptom [Unknown]
  - Decreased appetite [Recovered/Resolved]
  - Fatigue [Recovered/Resolved]
  - Hypotension [Recovered/Resolved]
  - Hypoxia [Recovered/Resolved]
  - Pyrexia [Recovered/Resolved]
  - Tachycardia [Recovered/Resolved]
  - Disease progression [Unknown]
  - Product use issue [Unknown]
